FAERS Safety Report 4896339-6 (Version None)
Quarter: 2006Q1

REPORT INFORMATION
  Report Type: 
  Country: None (occurrence: None)
  Receive Date: 20060126
  Receipt Date: 20060119
  Transmission Date: 20060701
  Serious: Yes (Hospitalization)
  Sender: FDA-Public Use
  Company Number: MK200508-0312-2

PATIENT
  Age: 56 Year
  Sex: Female

DRUGS (2)
  1. HEXABRIX [Suspect]
     Dosage: SINGLE USE, IV
     Route: 042
     Dates: start: 20050602, end: 20050602
  2. ATARAX [Concomitant]

REACTIONS (2)
  - PRURIGO [None]
  - TOXIC EPIDERMAL NECROLYSIS [None]
